FAERS Safety Report 8015396-1 (Version None)
Quarter: 2011Q4

REPORT INFORMATION
  Report Type: 
  Country: None (occurrence: None)
  Receive Date: 20111230
  Receipt Date: 20111222
  Transmission Date: 20120403
  Serious: Yes (Hospitalization)
  Sender: FDA-Public Use
  Company Number: JP-ASTELLAS-2011US007766

PATIENT
  Sex: Male
  Weight: 47 kg

DRUGS (8)
  1. TARCEVA [Suspect]
     Indication: LUNG NEOPLASM MALIGNANT
     Dosage: 150 MG, UNKNOWN/D
     Route: 048
     Dates: start: 20100324, end: 20100511
  2. AMARYL [Concomitant]
     Indication: DIABETES MELLITUS
     Dosage: 1 DF, UID/QD
     Route: 048
     Dates: start: 20090803
  3. BASEN [Concomitant]
     Indication: DIABETES MELLITUS
     Dosage: 1 DF, TID
     Route: 048
     Dates: start: 20090903
  4. OXYCONTIN [Concomitant]
     Indication: CANCER PAIN
     Dosage: 1 DF, BID
     Dates: start: 20091209
  5. LOXONIN [Concomitant]
     Indication: CANCER PAIN
     Dosage: 60 MG, TID
     Route: 048
     Dates: start: 20090810
  6. MUCOSTA [Concomitant]
     Indication: CANCER PAIN
     Dosage: 100 MG, TID
     Route: 048
     Dates: start: 20090803
  7. RABEPRAZOLE SODIUM [Concomitant]
     Indication: GASTRITIS
     Dosage: 1 DF, UID/QD
     Route: 048
     Dates: start: 20090325
  8. PRIMPERAN TAB [Concomitant]
     Indication: GASTRITIS
     Dosage: 5 MG, TID
     Route: 048
     Dates: start: 20090328

REACTIONS (1)
  - LUNG DISORDER [None]
